FAERS Safety Report 7037109-2 (Version None)
Quarter: 2010Q4

REPORT INFORMATION
  Report Type: 
  Country: None (occurrence: None)
  Receive Date: 20101011
  Receipt Date: 20101006
  Transmission Date: 20110411
  Serious: Yes (Life-Threatening, Hospitalization)
  Sender: FDA-Public Use
  Company Number: PHHO2010AU15115

PATIENT
  Sex: Female

DRUGS (7)
  1. AFINITOR RAD+O+CAP [Suspect]
     Indication: ACUTE MYELOID LEUKAEMIA
     Dosage: 5 MG
     Dates: start: 20100625
  2. AFINITOR RAD+O+CAP [Suspect]
     Dosage: 2.5 MG
  3. AFINITOR RAD+O+CAP [Suspect]
     Dosage: 5 MG
     Dates: start: 20100820, end: 20100905
  4. AZITHROMYCIN [Suspect]
  5. AZACITIDINE COMP-AZAC+ [Suspect]
     Indication: ACUTE MYELOID LEUKAEMIA
     Dosage: 128 MG
     Dates: start: 20100621
  6. AZACITIDINE COMP-AZAC+ [Suspect]
     Dosage: 128 MG
     Dates: start: 20100816, end: 20100824
  7. AZACITIDINE COMP-AZAC+ [Suspect]
     Dosage: UNK

REACTIONS (15)
  - ABDOMINAL PAIN [None]
  - ALVEOLITIS [None]
  - ANAPHYLACTIC REACTION [None]
  - BRONCHIOLITIS [None]
  - BRONCHOPNEUMONIA [None]
  - CARDIOMYOPATHY [None]
  - DYSPNOEA [None]
  - EJECTION FRACTION DECREASED [None]
  - FLUID OVERLOAD [None]
  - HYPOTENSION [None]
  - LIVER INJURY [None]
  - MULTI-ORGAN FAILURE [None]
  - NEUTROPENIA [None]
  - PLEURAL EFFUSION [None]
  - RENAL FAILURE ACUTE [None]
